FAERS Safety Report 20736867 (Version 14)
Quarter: 2025Q3

REPORT INFORMATION
  Report Type: Report from Study
  Country: US (occurrence: US)
  Receive Date: 20220421
  Receipt Date: 20250714
  Transmission Date: 20251020
  Serious: Yes (Hospitalization, Other)
  Sender: TAKEDA
  Company Number: US-TAKEDA-US202032136

PATIENT
  Age: 74 Year
  Sex: Female
  Weight: 78 kg

DRUGS (28)
  1. TEDUGLUTIDE [Suspect]
     Active Substance: TEDUGLUTIDE
     Indication: Short-bowel syndrome
     Dosage: 0.33 MILLILITER, QD
     Dates: start: 2013
  2. TEDUGLUTIDE [Suspect]
     Active Substance: TEDUGLUTIDE
     Dosage: 0.33 MILLILITER, QD
  3. TEDUGLUTIDE [Suspect]
     Active Substance: TEDUGLUTIDE
     Dosage: 0.33 MILLILITER, QD
  4. TEDUGLUTIDE [Suspect]
     Active Substance: TEDUGLUTIDE
     Dosage: 0.33 MILLILITER, QD
  5. TEDUGLUTIDE [Suspect]
     Active Substance: TEDUGLUTIDE
     Dosage: 0.33 MILLILITER, QD
  6. TEDUGLUTIDE [Suspect]
     Active Substance: TEDUGLUTIDE
     Dosage: 0.33 MILLILITER, QD
  7. TEDUGLUTIDE [Suspect]
     Active Substance: TEDUGLUTIDE
     Dosage: 0.33 MILLILITER, QD
  8. TEDUGLUTIDE [Suspect]
     Active Substance: TEDUGLUTIDE
     Dosage: 0.33 MILLILITER, QD
  9. TRAZODONE HCL [Concomitant]
     Active Substance: TRAZODONE HYDROCHLORIDE
  10. ENEMA (SODIUM PHOSPHATE, DIBASIC\SODIUM PHOSPHATE, MONOBASIC) [Concomitant]
     Active Substance: SODIUM PHOSPHATE, DIBASIC\SODIUM PHOSPHATE, MONOBASIC
  11. VITAMIN D3 [Concomitant]
     Active Substance: CHOLECALCIFEROL
  12. CELEXA [Concomitant]
     Active Substance: CITALOPRAM HYDROBROMIDE
  13. CRANBERRY [Concomitant]
     Active Substance: CRANBERRY
  14. VITAMIN C [Concomitant]
     Active Substance: ASCORBIC ACID
  15. XYZAL [Concomitant]
     Active Substance: LEVOCETIRIZINE DIHYDROCHLORIDE
  16. ROXICODONE [Concomitant]
     Active Substance: OXYCODONE HYDROCHLORIDE
  17. CARAFATE [Concomitant]
     Active Substance: SUCRALFATE
  18. LORATADINE [Concomitant]
     Active Substance: LORATADINE
  19. ZINC [Concomitant]
     Active Substance: ZINC
  20. LIPITOR [Concomitant]
     Active Substance: ATORVASTATIN CALCIUM
  21. PREVACID [Concomitant]
     Active Substance: LANSOPRAZOLE
  22. SINGULAIR [Concomitant]
     Active Substance: MONTELUKAST SODIUM
  23. ATIVAN [Concomitant]
     Active Substance: LORAZEPAM
  24. AMBIEN [Concomitant]
     Active Substance: ZOLPIDEM TARTRATE
  25. LOMOTIL [Concomitant]
     Active Substance: ATROPINE SULFATE\DIPHENOXYLATE HYDROCHLORIDE
  26. SODIUM CHLORIDE [Concomitant]
     Active Substance: SODIUM CHLORIDE
  27. CYMBALTA [Concomitant]
     Active Substance: DULOXETINE HYDROCHLORIDE
  28. BACLOFEN [Concomitant]
     Active Substance: BACLOFEN

REACTIONS (26)
  - Bacterial infection [Unknown]
  - Thoracic vertebral fracture [Unknown]
  - Limb injury [Unknown]
  - Peripheral swelling [Unknown]
  - Injection site mass [Recovering/Resolving]
  - Injection site nodule [Not Recovered/Not Resolved]
  - Injection site scar [Unknown]
  - Abdominal hernia [Unknown]
  - Fall [Unknown]
  - Mucous stools [Unknown]
  - Memory impairment [Unknown]
  - Gastrointestinal stoma output abnormal [Unknown]
  - Malaise [Unknown]
  - Fatigue [Not Recovered/Not Resolved]
  - Syringe issue [Unknown]
  - Multiple allergies [Unknown]
  - Arthritis [Unknown]
  - Illness [Unknown]
  - Sinus disorder [Recovering/Resolving]
  - Myalgia [Unknown]
  - Inappropriate schedule of product administration [Unknown]
  - Product dose omission issue [Unknown]
  - Weight decreased [Unknown]
  - Injection site pain [Unknown]
  - Injection site erythema [Recovered/Resolved]
  - Abdominal pain upper [Unknown]

NARRATIVE: CASE EVENT DATE: 20230727
